FAERS Safety Report 7727098-7 (Version None)
Quarter: 2011Q3

REPORT INFORMATION
  Report Type: 
  Country: None (occurrence: None)
  Receive Date: 20110902
  Receipt Date: 20110826
  Transmission Date: 20111222
  Serious: Yes (Life-Threatening, Hospitalization)
  Sender: FDA-Public Use
  Company Number: FR-JNJFOC-20070403938

PATIENT
  Sex: Female
  Weight: 46 kg

DRUGS (6)
  1. INFLIXIMAB [Suspect]
     Route: 042
     Dates: start: 20060228
  2. FERROUS SULFATE TAB [Concomitant]
     Indication: ANAEMIA
     Dates: start: 20060501
  3. INFLIXIMAB [Suspect]
     Indication: CROHN'S DISEASE
     Route: 042
     Dates: start: 20060120
  4. INFLIXIMAB [Suspect]
     Route: 042
     Dates: start: 20060106
  5. AZATHIOPRINE [Concomitant]
     Indication: CROHN'S DISEASE
     Dates: start: 20060904, end: 20070316
  6. MESALAMINE [Concomitant]
     Indication: CROHN'S DISEASE
     Dates: start: 20061207

REACTIONS (1)
  - HODGKIN'S DISEASE [None]
